FAERS Safety Report 5045066-3 (Version None)
Quarter: 2006Q2

REPORT INFORMATION
  Report Type: 
  Country: None (occurrence: None)
  Receive Date: 20060601
  Receipt Date: 20060313
  Transmission Date: 20061013
  Serious: No
  Sender: FDA-Public Use
  Company Number: US200603003661

PATIENT
  Age: 30 Year
  Sex: Female
  Weight: 68 kg

DRUGS (2)
  1. CYMBALTA [Suspect]
     Indication: DRUG USE FOR UNKNOWN INDICATION
     Dosage: 30 MG, DAILY (1/D)
  2. TRAMADOL HCL [Concomitant]

REACTIONS (4)
  - ANXIETY [None]
  - EMOTIONAL DISORDER [None]
  - NAUSEA [None]
  - NERVOUSNESS [None]
